FAERS Safety Report 19652558 (Version 3)
Quarter: 2021Q3

REPORT INFORMATION
  Report Type: Report from Study
  Country: CA (occurrence: CA)
  Receive Date: 20210803
  Receipt Date: 20210826
  Transmission Date: 20211014
  Serious: Yes (Other)
  Sender: FDA-Public Use
  Company Number: CA-KYOWAKIRIN-2021BKK013142

PATIENT

DRUGS (7)
  1. CRYSVITA [Suspect]
     Active Substance: BUROSUMAB-TWZA
     Dosage: 50 MG/ Q 2 WEEKS
     Route: 058
     Dates: start: 20210812
  2. CRYSVITA [Suspect]
     Active Substance: BUROSUMAB-TWZA
     Dosage: 40 MG / Q 2 WEEKS
     Route: 058
     Dates: start: 20200903, end: 20210429
  3. CRYSVITA [Suspect]
     Active Substance: BUROSUMAB-TWZA
     Indication: HEREDITARY HYPOPHOSPHATAEMIC RICKETS
     Dosage: 50 MG/ Q 2 WEEKS
     Route: 058
     Dates: start: 20210708, end: 20210708
  4. CRYSVITA [Suspect]
     Active Substance: BUROSUMAB-TWZA
     Dosage: 50 MG/ Q 2 WEEKS
     Route: 058
     Dates: start: 20210513, end: 2021
  5. CRYSVITA [Suspect]
     Active Substance: BUROSUMAB-TWZA
     Dosage: 30 MG / Q 2 WEEKS
     Route: 058
     Dates: start: 20200515, end: 20200821
  6. CRYSVITA [Suspect]
     Active Substance: BUROSUMAB-TWZA
     Dosage: 50 MG/ Q 2 WEEKS
     Route: 058
     Dates: start: 20210708, end: 20210708
  7. CRYSVITA [Suspect]
     Active Substance: BUROSUMAB-TWZA
     Dosage: 50 MG/ Q 2 WEEKS
     Route: 058
     Dates: start: 20210812

REACTIONS (1)
  - Knee operation [Unknown]

NARRATIVE: CASE EVENT DATE: 20210728
